FAERS Safety Report 8164789-0 (Version None)
Quarter: 2012Q1

REPORT INFORMATION
  Report Type: 
  Country: None (occurrence: None)
  Receive Date: 20120227
  Receipt Date: 20120214
  Transmission Date: 20120608
  Serious: No
  Sender: FDA-Public Use
  Company Number: US-BIOGENIDEC-2012BI006007

PATIENT
  Age: 42 Year
  Sex: Female

DRUGS (4)
  1. TYSABRI [Suspect]
     Indication: MULTIPLE SCLEROSIS
     Route: 042
     Dates: start: 20110615
  2. AVONEX [Concomitant]
     Route: 030
     Dates: start: 20080305
  3. AVONEX [Concomitant]
     Route: 030
     Dates: start: 20101004
  4. AVONEX [Concomitant]
     Indication: MULTIPLE SCLEROSIS
     Route: 030
     Dates: start: 20000101

REACTIONS (9)
  - GENERAL PHYSICAL HEALTH DETERIORATION [None]
  - FLUSHING [None]
  - URINARY TRACT INFECTION [None]
  - FEELING HOT [None]
  - ASTHENIA [None]
  - VAGINAL DISCHARGE [None]
  - DIARRHOEA [None]
  - DIZZINESS [None]
  - DEPRESSION [None]
